FAERS Safety Report 19632677 (Version 27)
Quarter: 2022Q4

REPORT INFORMATION
  Report Type: Spontaneous
  Country: CA (occurrence: CA)
  Receive Date: 20210728
  Receipt Date: 20221125
  Transmission Date: 20230113
  Serious: Yes (Hospitalization, Other)
  Sender: FDA-Public Use
  Company Number: CA-CELLTRION INC.-2021CA010130

PATIENT

DRUGS (46)
  1. INFLECTRA [Suspect]
     Active Substance: INFLIXIMAB-DYYB
     Indication: Crohn^s disease
     Dosage: 10 MG/KG AT 0, 2, 6 WEEKS, THEN EVERY 8 WEEKS
     Route: 042
     Dates: start: 20190612, end: 20190612
  2. INFLECTRA [Suspect]
     Active Substance: INFLIXIMAB-DYYB
     Dosage: 10 MG/KG AT 0, 2, 6 WEEKS, THEN EVERY 8 WEEKS
     Route: 042
     Dates: start: 20190612, end: 20190819
  3. INFLECTRA [Suspect]
     Active Substance: INFLIXIMAB-DYYB
     Dosage: 400 MG EVERY 8 WEEKS
     Route: 042
     Dates: start: 20191018, end: 20200528
  4. INFLECTRA [Suspect]
     Active Substance: INFLIXIMAB-DYYB
     Dosage: 7500 MG/KG EVERY 4 WEEKS
     Route: 042
     Dates: start: 20191018, end: 20200528
  5. INFLECTRA [Suspect]
     Active Substance: INFLIXIMAB-DYYB
     Dosage: 400 MG EVERY 8 WEEKS
     Route: 042
     Dates: start: 20200528
  6. INFLECTRA [Suspect]
     Active Substance: INFLIXIMAB-DYYB
     Dosage: 10 MG/KG AT WEEK 0, 2, 6 AND THEN EVERY 6 WEEKS (RE-INDUCTION)
     Route: 042
     Dates: start: 20200710, end: 20200814
  7. INFLECTRA [Suspect]
     Active Substance: INFLIXIMAB-DYYB
     Dosage: 10 MG/KG EVERY 4 WEEKS (DOSE ROUNDED TO NEAREST HUNDRED)
     Route: 042
     Dates: start: 20200925, end: 20201207
  8. INFLECTRA [Suspect]
     Active Substance: INFLIXIMAB-DYYB
     Dosage: 10 MG/KG EVERY 4 WEEKS (DOSE ROUNDED TO NEAREST HUNDRED)
     Route: 042
     Dates: start: 20201207
  9. INFLECTRA [Suspect]
     Active Substance: INFLIXIMAB-DYYB
     Dosage: 7.5 MG/KG EVERY 4 WEEKS (DOSE ROUNDED TO NEAREST HUNDRED) 7500UG/KG
     Route: 042
     Dates: start: 20210108, end: 20210301
  10. INFLECTRA [Suspect]
     Active Substance: INFLIXIMAB-DYYB
     Dosage: 7.5 MG/KG EVERY 4 WEEKS (DOSE ROUNDED TO NEAREST HUNDRED) 7500 UG/KG
     Route: 042
     Dates: start: 20210301
  11. INFLECTRA [Suspect]
     Active Substance: INFLIXIMAB-DYYB
     Dosage: 5 MG/KG EVERY 4 WEEKS (ROUND TO NEAREST VIAL)
     Route: 042
     Dates: start: 20210331
  12. INFLECTRA [Suspect]
     Active Substance: INFLIXIMAB-DYYB
     Dosage: 5 MG/KG EVERY 4 WEEKS
     Route: 042
     Dates: start: 20210611
  13. INFLECTRA [Suspect]
     Active Substance: INFLIXIMAB-DYYB
     Dosage: 5 MG/KG EVERY 4 WEEKS
     Route: 042
     Dates: start: 20210611
  14. INFLECTRA [Suspect]
     Active Substance: INFLIXIMAB-DYYB
     Dosage: 5 MG/KG EVERY 4 WEEKS
     Route: 042
     Dates: start: 20210714
  15. INFLECTRA [Suspect]
     Active Substance: INFLIXIMAB-DYYB
     Dosage: 5 MG/KG EVERY 4 WEEKS
     Route: 042
     Dates: start: 20210908
  16. INFLECTRA [Suspect]
     Active Substance: INFLIXIMAB-DYYB
     Dosage: 5 MG/KG EVERY 4 WEEKS
     Route: 042
     Dates: start: 20211005
  17. INFLECTRA [Suspect]
     Active Substance: INFLIXIMAB-DYYB
     Dosage: 5 MG/KG EVERY 4 WEEKS
     Route: 042
     Dates: start: 20211102
  18. INFLECTRA [Suspect]
     Active Substance: INFLIXIMAB-DYYB
     Dosage: 300 MG
     Route: 042
     Dates: start: 20211202
  19. INFLECTRA [Suspect]
     Active Substance: INFLIXIMAB-DYYB
     Dosage: 5 MG/KG, EVERY 4 WEEKS
     Route: 042
     Dates: start: 20220114
  20. INFLECTRA [Suspect]
     Active Substance: INFLIXIMAB-DYYB
     Dosage: 5 MG/KG EVERY 4 WEEKS
     Route: 042
     Dates: start: 20220308
  21. INFLECTRA [Suspect]
     Active Substance: INFLIXIMAB-DYYB
     Dosage: 5 MG/KG EVERY 4 WEEKS
     Route: 042
     Dates: start: 20220427
  22. INFLECTRA [Suspect]
     Active Substance: INFLIXIMAB-DYYB
     Dosage: 5 MG/KG EVERY 4 WEEKS (ROUND TO NEAREST VIAL)
     Route: 042
     Dates: start: 20220623
  23. INFLECTRA [Suspect]
     Active Substance: INFLIXIMAB-DYYB
     Dosage: 5 MG/KG EVERY 4 WEEKS (ROUND TO NEAREST VIAL)
     Route: 042
     Dates: start: 20220721
  24. INFLECTRA [Suspect]
     Active Substance: INFLIXIMAB-DYYB
     Dosage: 5 MG/KG EVERY 4 WEEKS (ROUND TO NEAREST VIAL)
     Route: 042
     Dates: start: 20220819
  25. INFLECTRA [Suspect]
     Active Substance: INFLIXIMAB-DYYB
     Dosage: 5 MG/KG EVERY 4 WEEKS (ROUND TO NEAREST VIAL)
     Route: 042
     Dates: start: 20220916
  26. INFLECTRA [Suspect]
     Active Substance: INFLIXIMAB-DYYB
     Dosage: 5 MG/KG EVERY 4 WEEKS (ROUND TO NEAREST VIAL)
     Route: 042
     Dates: start: 20221021
  27. INFLECTRA [Suspect]
     Active Substance: INFLIXIMAB-DYYB
     Dosage: 5 MG/KG EVERY 4 WEEKS (ROUND TO NEAREST VIAL)
     Route: 042
     Dates: start: 20221116
  28. CIPRO [Concomitant]
     Active Substance: CIPROFLOXACIN HYDROCHLORIDE
     Dosage: UNK
  29. CLINDAMYCIN [Concomitant]
     Active Substance: CLINDAMYCIN
     Dosage: 1 DF, UNK DOSE
  30. D gel [Concomitant]
     Dosage: 1000 IU, 1X/DAY
  31. FERROUS SULFATE [Concomitant]
     Active Substance: FERROUS SULFATE
     Dosage: IRON INJECTION
     Dates: start: 20220930
  32. JAMP CALCIUM [Concomitant]
     Dosage: 500 MG, 2X/DAY
  33. JAMP DICYCLOMINE HCL [Concomitant]
     Dosage: 1 DF, 4X/DAY, 10 MILLIGRAMS 2 TABLETS EVERY 8 HOURS AND 1 TABLET WHEN BEFORE SLEEPING)
  34. JAMP DICYCLOMINE HCL [Concomitant]
     Dosage: 10 MG, 3X/DAY, 2 TABS TID Q8H + 1 TAB HS
  35. LORAZEPAM [Concomitant]
     Active Substance: LORAZEPAM
     Dosage: 1 MG, AS NEEDED, HS PRN
  36. LORAZEPAM [Concomitant]
     Active Substance: LORAZEPAM
     Dosage: 1 DF, AS NEEDED (1 MG HS PRN)
  37. MORPHINE SULFATE [Concomitant]
     Active Substance: MORPHINE SULFATE
     Dosage: 1 MG (1DF), 2X/DAY, HALF TAB BID
  38. METHADONE HYDROCHLORIDE [Concomitant]
     Active Substance: METHADONE HYDROCHLORIDE
     Dosage: 1 MG, 2X/DAY, 1/2 TABLET TWICE DAILY
     Route: 048
  39. MORPHINE [Concomitant]
     Active Substance: MORPHINE
     Dosage: UNK
     Dates: start: 20220210
  40. MYLAN ESOMEPRAZOLE [Concomitant]
     Dosage: 40 MG, 1X/DAY
  41. PREDNISONE [Concomitant]
     Active Substance: PREDNISONE
     Dosage: 1 DF, UNK DOSE
  42. RIVA RANITIDINE [Concomitant]
     Dosage: 1 DF, 150 MG 1 TAB (BID) TWICE DAILY, 8MG3/4 TAB TID PRN
  43. RIVA RANITIDINE [Concomitant]
     Dosage: 1 DF, 2X/DAY (150 MG 1 TAB BID)
  44. SANDOZ ONDANSETRON [Concomitant]
     Dosage: 8 MG (1DF), AS NEEDED, 3/4 TAB TID PRN
  45. MORPHINE SULFATE [Concomitant]
     Active Substance: MORPHINE SULFATE
     Dosage: 5 MG (1DF) AS NEEDED, EVERY HOUR PRN
  46. SUCRALFATE [Concomitant]
     Active Substance: SUCRALFATE
     Dosage: 5 ML 4X/DAY

REACTIONS (42)
  - Abscess limb [Not Recovered/Not Resolved]
  - Haemoglobin decreased [Unknown]
  - Bacterial infection [Not Recovered/Not Resolved]
  - Groin abscess [Unknown]
  - Haematochezia [Not Recovered/Not Resolved]
  - Drug ineffective [Unknown]
  - Therapeutic product effect incomplete [Unknown]
  - Incorrect dose administered [Unknown]
  - Anxiety [Unknown]
  - Chromaturia [Not Recovered/Not Resolved]
  - Bladder discomfort [Not Recovered/Not Resolved]
  - Cystitis interstitial [Unknown]
  - Dehydration [Not Recovered/Not Resolved]
  - Blood urine present [Not Recovered/Not Resolved]
  - Burning sensation [Not Recovered/Not Resolved]
  - Vaginal discharge [Unknown]
  - Eye discharge [Not Recovered/Not Resolved]
  - Renal disorder [Unknown]
  - Eye swelling [Not Recovered/Not Resolved]
  - Secretion discharge [Not Recovered/Not Resolved]
  - Ocular hyperaemia [Not Recovered/Not Resolved]
  - Nasal pruritus [Recovered/Resolved]
  - Nasal dryness [Recovered/Resolved]
  - Malaise [Unknown]
  - Discouragement [Unknown]
  - Frustration tolerance decreased [Unknown]
  - Loss of personal independence in daily activities [Unknown]
  - Chills [Not Recovered/Not Resolved]
  - Condition aggravated [Recovered/Resolved]
  - COVID-19 [Recovered/Resolved]
  - Abdominal pain [Not Recovered/Not Resolved]
  - Pain [Not Recovered/Not Resolved]
  - Urinary tract infection [Recovered/Resolved]
  - Vaginal infection [Not Recovered/Not Resolved]
  - Diarrhoea [Not Recovered/Not Resolved]
  - Fatigue [Unknown]
  - Myalgia [Not Recovered/Not Resolved]
  - Pyrexia [Not Recovered/Not Resolved]
  - Conjunctivitis [Recovered/Resolved]
  - Off label use [Unknown]
  - Off label use [Unknown]
  - Inappropriate schedule of product administration [Unknown]

NARRATIVE: CASE EVENT DATE: 20190612
